FAERS Safety Report 4652480-4 (Version None)
Quarter: 2005Q2

REPORT INFORMATION
  Report Type: 
  Country: None (occurrence: None)
  Receive Date: 20050504
  Receipt Date: 20050218
  Transmission Date: 20051028
  Serious: Yes (Other)
  Sender: FDA-Public Use
  Company Number: PHNU2005DE01003

PATIENT
  Age: 24 Year
  Sex: Female

DRUGS (1)
  1. PRAVIDEL [Suspect]
     Indication: PROLACTINOMA
     Dosage: 2.5 MG, BID
     Route: 048
     Dates: end: 20041201

REACTIONS (2)
  - ABORTION SPONTANEOUS [None]
  - DRUG EXPOSURE DURING PREGNANCY [None]
